FAERS Safety Report 14687969 (Version 1)
Quarter: 2018Q1

REPORT INFORMATION
  Report Type: Spontaneous
  Country: US (occurrence: US)
  Receive Date: 20180327
  Receipt Date: 20180327
  Transmission Date: 20180509
  Serious: No
  Sender: FDA-Public Use
  Company Number: None

PATIENT
  Sex: Female
  Weight: 66.68 kg

DRUGS (15)
  1. ZETIA [Concomitant]
     Active Substance: EZETIMIBE
  2. OSTEO-BIFLEX [Concomitant]
  3. PROBIOTIC ENZYME [Concomitant]
  4. TRAMADOL. [Concomitant]
     Active Substance: TRAMADOL
  5. CALCIUM [Concomitant]
     Active Substance: CALCIUM
  6. VITAMIN D3 [Concomitant]
     Active Substance: CHOLECALCIFEROL
  7. LEVOTHYROXINE. [Concomitant]
     Active Substance: LEVOTHYROXINE
  8. VITAMIN C [Concomitant]
     Active Substance: ASCORBIC ACID
  9. IBANDRONATE SODIUM TABLET [Suspect]
     Active Substance: IBANDRONATE SODIUM
     Indication: OSTEOPOROSIS
     Dosage: EVERY 30 DAYS; ROUTE - BY MOUTH, EMPTY STOMACH, NO FOOD, DO NOT LIE DOWN FOR 60 MINUTES
     Route: 048
     Dates: start: 20151016, end: 20170126
  10. GARLIC. [Concomitant]
     Active Substance: GARLIC
  11. VITAMIN E [Concomitant]
     Active Substance: .ALPHA.-TOCOPHEROL
  12. AMLODOPINE [Concomitant]
     Active Substance: AMLODIPINE BESYLATE
  13. LECITHIN [Concomitant]
     Active Substance: LECITHIN
  14. ATENOLOL/CHOR [Concomitant]
  15. TURMERIC [Concomitant]
     Active Substance: HERBALS\TURMERIC

REACTIONS (4)
  - Diarrhoea [None]
  - Back pain [None]
  - Pain in extremity [None]
  - Myalgia [None]

NARRATIVE: CASE EVENT DATE: 2016
